FAERS Safety Report 7663468-3 (Version None)
Quarter: 2011Q3

REPORT INFORMATION
  Report Type: 
  Country: None (occurrence: None)
  Receive Date: 20110805
  Receipt Date: 20100728
  Transmission Date: 20111222
  Serious: No
  Sender: FDA-Public Use
  Company Number: US-ABBOTT-10P-163-0658614-00

PATIENT
  Sex: Male
  Weight: 95.34 kg

DRUGS (4)
  1. NIASPAN [Suspect]
     Indication: HIGH DENSITY LIPOPROTEIN INCREASED
     Dates: start: 20070101, end: 20070101
  2. NIASPAN [Suspect]
     Indication: HYPERLIPIDAEMIA
     Dates: start: 20100601
  3. TESTOSTERONE [Concomitant]
     Indication: PRODUCT USED FOR UNKNOWN INDICATION
  4. ASPIRIN [Concomitant]
     Indication: PRODUCT USED FOR UNKNOWN INDICATION

REACTIONS (4)
  - WRONG TECHNIQUE IN DRUG USAGE PROCESS [None]
  - SKIN DISCOLOURATION [None]
  - INCORRECT DOSE ADMINISTERED [None]
  - FLUSHING [None]
